FAERS Safety Report 8376372-2 (Version None)
Quarter: 2012Q2

REPORT INFORMATION
  Report Type: 
  Country: None (occurrence: None)
  Receive Date: 20120522
  Receipt Date: 20120514
  Transmission Date: 20120825
  Serious: Yes (Hospitalization, Other)
  Sender: FDA-Public Use
  Company Number: IL-ASTRAZENECA-2012SE13933

PATIENT
  Age: 15461 Day
  Sex: Male

DRUGS (3)
  1. VANDETANIB [Suspect]
     Route: 048
     Dates: start: 20120226, end: 20120427
  2. LEVOTHYROXINE SODIUM [Concomitant]
     Indication: THYROIDECTOMY
     Route: 048
     Dates: start: 20080101
  3. VANDETANIB [Suspect]
     Indication: THYROID CANCER
     Route: 048
     Dates: start: 20120113, end: 20120220

REACTIONS (1)
  - DERMATITIS ALLERGIC [None]
